FAERS Safety Report 6211789-3 (Version None)
Quarter: 2009Q2

REPORT INFORMATION
  Report Type: 
  Country: None (occurrence: None)
  Receive Date: 20090529
  Receipt Date: 20090512
  Transmission Date: 20091009
  Serious: Yes (Hospitalization)
  Sender: FDA-Public Use
  Company Number: 2008S1008118

PATIENT
  Age: 76 Year
  Sex: Female

DRUGS (2)
  1. PHOSPHOSODA FLAVOR NOT SPECIFIED [Suspect]
     Indication: COLONOSCOPY
     Dosage: 90 M; TOTAL; PO
     Route: 048
     Dates: start: 20070805, end: 20070806
  2. LISINOPRL [Concomitant]

REACTIONS (5)
  - ANAEMIA [None]
  - DYSLIPIDAEMIA [None]
  - NAUSEA [None]
  - NEPHROPATHY [None]
  - RENAL FAILURE CHRONIC [None]
